FAERS Safety Report 4324721-4 (Version None)
Quarter: 2004Q1

REPORT INFORMATION
  Report Type: 
  Country: None (occurrence: None)
  Receive Date: 20040326
  Receipt Date: 20040317
  Transmission Date: 20041129
  Serious: Yes (Other)
  Sender: FDA-Public Use
  Company Number: WAES 0403ESP00028

PATIENT
  Age: 45 Year
  Sex: Male

DRUGS (5)
  1. ASPIRIN [Concomitant]
  2. BISOPROLOL [Concomitant]
  3. ZETIA [Suspect]
     Indication: BLOOD CHOLESTEROL INCREASED
     Route: 048
     Dates: start: 20030101
  4. INSULIN [Concomitant]
     Indication: DIABETES MELLITUS
  5. RAMIPRIL [Concomitant]

REACTIONS (1)
  - RHABDOMYOLYSIS [None]
